FAERS Safety Report 5811776-0 (Version None)
Quarter: 2008Q3

REPORT INFORMATION
  Report Type: 
  Country: None (occurrence: None)
  Receive Date: 20080711
  Receipt Date: 20080626
  Transmission Date: 20090109
  Serious: Yes (Hospitalization)
  Sender: FDA-Public Use
  Company Number: S08-SWI-02295-01

PATIENT
  Age: 66 Year
  Sex: Male

DRUGS (7)
  1. MEMANTINE HCL [Suspect]
     Indication: DEMENTIA
     Dosage: 15 MG QD PO
     Route: 048
     Dates: start: 20080212, end: 20080101
  2. MEMANTINE HCL [Suspect]
     Dates: start: 20080101
  3. CYMBALTA [Concomitant]
  4. PRAZINE (PROMAZINE HYDROCHLORIDE) [Concomitant]
  5. XANAX [Concomitant]
  6. RISPERDAL [Concomitant]
  7. REMERON [Concomitant]

REACTIONS (3)
  - BIPOLAR DISORDER [None]
  - CONDITION AGGRAVATED [None]
  - HYPOMANIA [None]
